FAERS Safety Report 14638387 (Version 1)
Quarter: 2018Q1

REPORT INFORMATION
  Report Type: Spontaneous
  Country: US (occurrence: US)
  Receive Date: 20180314
  Receipt Date: 20180314
  Transmission Date: 20180509
  Serious: Yes (Hospitalization, Other)
  Sender: FDA-Public Use
  Company Number: US-OTSUKA-2018_005346

PATIENT
  Age: 9 Year
  Sex: Female
  Weight: 27.2 kg

DRUGS (4)
  1. LEVOTHYROXINE. [Concomitant]
     Active Substance: LEVOTHYROXINE
     Indication: HYPOTHYROIDISM
     Dosage: UNK
     Route: 065
  2. SEROQUEL [Suspect]
     Active Substance: QUETIAPINE FUMARATE
     Indication: AUTISM SPECTRUM DISORDER
     Dosage: UNK
     Route: 065
  3. ABILIFY [Suspect]
     Active Substance: ARIPIPRAZOLE
     Indication: PRODUCT USED FOR UNKNOWN INDICATION
     Dosage: UNK
     Route: 065
  4. GENOTROPIN 12 MG [Suspect]
     Active Substance: SOMATROPIN
     Indication: SEPTO-OPTIC DYSPLASIA
     Dosage: 0.8MG INJECTION DAILY
     Route: 065

REACTIONS (15)
  - Adrenal insufficiency [Unknown]
  - Vomiting [Unknown]
  - Incorrect dose administered by device [None]
  - Refusal of treatment by patient [None]
  - Dehydration [Unknown]
  - Thyroid hormones decreased [None]
  - Gastrointestinal infection [Unknown]
  - Eating disorder [Unknown]
  - Seizure [Unknown]
  - Adverse event [Unknown]
  - Decreased appetite [Recovering/Resolving]
  - Drug dose omission [None]
  - Extra dose administered [None]
  - Device leakage [None]
  - Constipation [Unknown]

NARRATIVE: CASE EVENT DATE: 201712
